FAERS Safety Report 5679354-4 (Version None)
Quarter: 2008Q1

REPORT INFORMATION
  Report Type: 
  Country: None (occurrence: None)
  Receive Date: 20080321
  Receipt Date: 20080313
  Transmission Date: 20080703
  Serious: Yes (Hospitalization)
  Sender: FDA-Public Use
  Company Number: 2008S1000077

PATIENT
  Age: 44 Year
  Sex: Female

DRUGS (3)
  1. ACITRETIN [Suspect]
     Indication: KERATOSIS FOLLICULAR
     Dosage: PO, PO
     Route: 048
     Dates: start: 20000301, end: 20040101
  2. TACROLIMUS [Suspect]
     Indication: KERATOSIS FOLLICULAR
     Dosage: TOP
     Route: 061
  3. ACYCLOVIR [Concomitant]

REACTIONS (6)
  - APPLICATION SITE IRRITATION [None]
  - CHEILITIS [None]
  - CONDITION AGGRAVATED [None]
  - DRY SKIN [None]
  - HYPERTENSION [None]
  - KERATOSIS FOLLICULAR [None]
